FAERS Safety Report 8272255-7 (Version None)
Quarter: 2012Q2

REPORT INFORMATION
  Report Type: 
  Country: None (occurrence: None)
  Receive Date: 20120410
  Receipt Date: 20120402
  Transmission Date: 20120825
  Serious: Yes (Death, Other)
  Sender: FDA-Public Use
  Company Number: PHHY2012US029842

PATIENT

DRUGS (3)
  1. VERAPAMIL [Suspect]
  2. LAMOTRGINE [Suspect]
  3. DULOXETINE HYDROCHLORIDE [Suspect]

REACTIONS (2)
  - DEATH [None]
  - SHOCK [None]
